FAERS Safety Report 9228197 (Version 1)
Quarter: 2013Q2

REPORT INFORMATION
  Report Type: Spontaneous
  Country: GB (occurrence: None)
  Receive Date: 20130410
  Receipt Date: 20130410
  Transmission Date: 20140414
  Serious: Yes (Hospitalization)
  Sender: FDA-Public Use
  Company Number: THQ2013A02759

PATIENT
  Age: 45 Year
  Sex: Male

DRUGS (3)
  1. LANSOPRAZOLE (LANSOPRAZOLE) [Suspect]
  2. FERROUS SULFATE [Suspect]
  3. CO-AMOXICLAV [Suspect]
     Indication: EMPYEMA

REACTIONS (9)
  - Hypozincaemia [None]
  - Alopecia [None]
  - Erythema [None]
  - Impaired healing [None]
  - Blood selenium decreased [None]
  - Blood copper increased [None]
  - Empyema [None]
  - Pneumonia [None]
  - Trace element deficiency [None]
